FAERS Safety Report 9333650 (Version 1)
Quarter: 2013Q2

REPORT INFORMATION
  Report Type: Spontaneous
  Country: DE (occurrence: DE)
  Receive Date: 20130606
  Receipt Date: 20130606
  Transmission Date: 20140414
  Serious: Yes (Other)
  Sender: FDA-Public Use
  Company Number: DE-TEVA-408465GER

PATIENT
  Sex: Female

DRUGS (1)
  1. AMOXICILLIN-RATIOPHARM [Suspect]
     Indication: ANTIBIOTIC PROPHYLAXIS
     Dates: start: 201305

REACTIONS (1)
  - Shock [Unknown]
